FAERS Safety Report 21841991 (Version 11)
Quarter: 2024Q3

REPORT INFORMATION
  Report Type: Spontaneous
  Country: US (occurrence: US)
  Receive Date: 20230110
  Receipt Date: 20240703
  Transmission Date: 20241017
  Serious: Yes (Hospitalization, Other)
  Sender: SANOFI AVENTIS
  Company Number: US-SA-SAC20230109001464

PATIENT
  Age: 29 Year
  Sex: Female
  Weight: 113.3 kg

DRUGS (7)
  1. DUPIXENT [Suspect]
     Active Substance: DUPILUMAB
     Indication: Idiopathic urticaria
     Dosage: 200 MG , QOW
     Route: 058
     Dates: start: 202206
  2. DUPIXENT [Suspect]
     Active Substance: DUPILUMAB
     Indication: Asthma
     Dosage: 200 MG, QOW
     Route: 058
     Dates: start: 20220718
  3. DUPIXENT [Suspect]
     Active Substance: DUPILUMAB
     Indication: Systemic lupus erythematosus
     Dosage: 300 MG, QOW
     Route: 058
  4. PREDNISONE [Suspect]
     Active Substance: PREDNISONE
  5. TAKHZYRO [Concomitant]
     Active Substance: LANADELUMAB-FLYO
     Dosage: UNK
  6. ICATIBANT ACETATE [Concomitant]
     Active Substance: ICATIBANT ACETATE
     Dosage: UNK
  7. EPINEPHRINE [Concomitant]
     Active Substance: EPINEPHRINE
     Dosage: UNK

REACTIONS (26)
  - Hereditary angioedema [Recovering/Resolving]
  - Pharyngeal swelling [Recovered/Resolved]
  - Mouth swelling [Recovered/Resolved]
  - Swollen tongue [Recovered/Resolved]
  - Facial discomfort [Not Recovered/Not Resolved]
  - Swelling [Recovered/Resolved]
  - Lip swelling [Unknown]
  - Peripheral swelling [Unknown]
  - Oropharyngeal discomfort [Not Recovered/Not Resolved]
  - Idiopathic urticaria [Recovered/Resolved]
  - Condition aggravated [Recovered/Resolved]
  - Anaphylactic reaction [Not Recovered/Not Resolved]
  - Swelling face [Recovered/Resolved]
  - Asthma [Unknown]
  - Arthropod bite [Not Recovered/Not Resolved]
  - Weight increased [Unknown]
  - Limb discomfort [Unknown]
  - Eye allergy [Unknown]
  - Eye pain [Unknown]
  - Oral pain [Unknown]
  - Glossodynia [Unknown]
  - Eye swelling [Recovered/Resolved]
  - Swelling face [Unknown]
  - Skin disorder [Unknown]
  - Weight decreased [Unknown]
  - Product use in unapproved indication [Unknown]

NARRATIVE: CASE EVENT DATE: 20220601
